FAERS Safety Report 23488676 (Version 1)
Quarter: 2024Q1

REPORT INFORMATION
  Report Type: Spontaneous
  Country: GB (occurrence: GB)
  Receive Date: 20240206
  Receipt Date: 20240206
  Transmission Date: 20240409
  Serious: No
  Sender: FDA-Public Use
  Company Number: GB-GSK-GB2024EME012975

PATIENT

DRUGS (1)
  1. SOTROVIMAB [Suspect]
     Active Substance: SOTROVIMAB
     Indication: COVID-19 immunisation
     Dosage: 500 MG, 1 VIAL, PRODUCT STRENGTH: 500MG/8MI
     Route: 042
     Dates: start: 20240125, end: 20240125

REACTIONS (6)
  - Catheter site pain [Recovering/Resolving]
  - Catheter site erythema [Recovering/Resolving]
  - Catheter site swelling [Recovering/Resolving]
  - Catheter site extravasation [Recovering/Resolving]
  - Incorrect dose administered [Unknown]
  - Product administration error [Unknown]
